FAERS Safety Report 5499896-4 (Version None)
Quarter: 2007Q4

REPORT INFORMATION
  Report Type: 
  Country: None (occurrence: None)
  Receive Date: 20071026
  Receipt Date: 20071015
  Transmission Date: 20080405
  Serious: Yes (Hospitalization)
  Sender: FDA-Public Use
  Company Number: US-GENENTECH-249551

PATIENT
  Sex: Female
  Weight: 76.8 kg

DRUGS (11)
  1. BEVACIZUMAB [Suspect]
     Indication: BREAST CANCER
     Dosage: 15 MG/KG, UNK
     Route: 042
     Dates: start: 20070117
  2. TRASTUZUMAB [Suspect]
     Indication: BREAST CANCER
     Dosage: 6 MG/KG, UNK
     Route: 042
     Dates: start: 20070117
  3. DOCETAXEL [Concomitant]
     Indication: BREAST CANCER
     Dosage: 75 MG/M2, UNK
     Route: 042
     Dates: start: 20070117
  4. CARBOPLATIN [Concomitant]
     Indication: BREAST CANCER
     Dosage: 6 MG/ML, UNK
     Route: 042
     Dates: start: 20070117
  5. CELEXA [Concomitant]
     Indication: DRUG USE FOR UNKNOWN INDICATION
     Dates: start: 20070801
  6. CLONAZEPAM [Concomitant]
     Indication: DRUG USE FOR UNKNOWN INDICATION
     Dates: start: 20070713
  7. DILTIAZEM HCL [Concomitant]
     Indication: DRUG USE FOR UNKNOWN INDICATION
     Dates: start: 19920101
  8. LEVOTHROID [Concomitant]
     Indication: DRUG USE FOR UNKNOWN INDICATION
     Dates: start: 19820101
  9. LORTAB [Concomitant]
     Indication: DRUG USE FOR UNKNOWN INDICATION
     Dates: start: 20061201
  10. LISINOPRIL [Concomitant]
     Indication: DRUG USE FOR UNKNOWN INDICATION
     Dates: start: 19940101
  11. TRIAMTERENE AND HYDROCHLOROTHIAZIDE [Concomitant]
     Indication: DRUG USE FOR UNKNOWN INDICATION
     Dates: start: 19920101

REACTIONS (4)
  - BLOOD SODIUM DECREASED [None]
  - HYPERTENSIVE CRISIS [None]
  - MENTAL STATUS CHANGES [None]
  - URINARY TRACT INFECTION [None]
